FAERS Safety Report 18741197 (Version 2)
Quarter: 2021Q1

REPORT INFORMATION
  Report Type: Spontaneous
  Country: US (occurrence: US)
  Receive Date: 20210114
  Receipt Date: 20210205
  Transmission Date: 20210419
  Serious: Yes (Hospitalization, Other)
  Sender: FDA-Public Use
  Company Number: US-GLAXOSMITHKLINE-US2021AMR002937

PATIENT
  Sex: Female

DRUGS (1)
  1. ALBUTEROL SULFATE. [Suspect]
     Active Substance: ALBUTEROL SULFATE
     Indication: PRODUCT USED FOR UNKNOWN INDICATION
     Dosage: UNK

REACTIONS (7)
  - Anxiety [Unknown]
  - Hospitalisation [Unknown]
  - Wrong technique in device usage process [Unknown]
  - Loss of personal independence in daily activities [Unknown]
  - Tremor [Unknown]
  - Respiratory distress [Unknown]
  - Arthritis [Unknown]
